FAERS Safety Report 23926370 (Version 1)
Quarter: 2024Q2

REPORT INFORMATION
  Report Type: Spontaneous
  Country: JP (occurrence: JP)
  Receive Date: 20240531
  Receipt Date: 20240531
  Transmission Date: 20240715
  Serious: Yes (Hospitalization, Other)
  Sender: FDA-Public Use
  Company Number: JP-AstraZeneca-CH-00633863A

PATIENT
  Age: 63 Year
  Sex: Female

DRUGS (1)
  1. ULTOMIRIS [Suspect]
     Active Substance: RAVULIZUMAB-CWVZ
     Indication: Myasthenia gravis
     Dosage: UNK
     Route: 042
     Dates: start: 20240205, end: 20240415

REACTIONS (2)
  - Myasthenia gravis [Unknown]
  - Productive cough [Unknown]

NARRATIVE: CASE EVENT DATE: 20240401
